FAERS Safety Report 4999375-4 (Version None)
Quarter: 2006Q2

REPORT INFORMATION
  Report Type: 
  Country: None (occurrence: None)
  Receive Date: 20060511
  Receipt Date: 20060112
  Transmission Date: 20061013
  Serious: Yes (Hospitalization, Other)
  Sender: FDA-Public Use
  Company Number: US-AVENTIS-200610547US

PATIENT
  Sex: Female
  Weight: 54.4 kg

DRUGS (10)
  1. AMARYL [Suspect]
     Indication: DIABETES MELLITUS NON-INSULIN-DEPENDENT
     Route: 048
     Dates: start: 20051011, end: 20051013
  2. NOVOLOG [Suspect]
     Indication: DIABETES MELLITUS NON-INSULIN-DEPENDENT
     Dosage: DOSE: SLIDING SCALE
     Dates: start: 20051011
  3. ARICEPT [Concomitant]
  4. ATENOLOL [Concomitant]
  5. NITRO-DUR [Concomitant]
     Dosage: DOSE: 0.4MG PER HOUR DAILY AND OFF NIGHTLY
  6. POTASSIUM CHLORIDE [Concomitant]
  7. SYNTHROID [Concomitant]
  8. ZOLOFT [Concomitant]
     Dosage: DOSE: UNK
  9. NAMENDA [Concomitant]
  10. DILANTIN [Concomitant]

REACTIONS (24)
  - ACIDOSIS HYPERCHLORAEMIC [None]
  - ANAEMIA [None]
  - ANAPHYLACTIC REACTION [None]
  - BAND NEUTROPHIL COUNT INCREASED [None]
  - BLOOD CREATININE INCREASED [None]
  - BLOOD GLUCOSE INCREASED [None]
  - BLOOD POTASSIUM INCREASED [None]
  - BLOOD UREA INCREASED [None]
  - BODY TEMPERATURE INCREASED [None]
  - CATHETER SEPSIS [None]
  - DEHYDRATION [None]
  - DRY MOUTH [None]
  - DYSPNOEA [None]
  - GASTROOESOPHAGEAL REFLUX DISEASE [None]
  - HYPOALBUMINAEMIA [None]
  - HYPOTENSION [None]
  - LEUKOCYTOSIS [None]
  - METABOLIC ACIDOSIS [None]
  - PULMONARY EMBOLISM [None]
  - RASH MACULAR [None]
  - RENAL FAILURE [None]
  - STAPHYLOCOCCAL BACTERAEMIA [None]
  - STAPHYLOCOCCAL INFECTION [None]
  - URINE ABNORMALITY [None]
